FAERS Safety Report 7051872-6 (Version None)
Quarter: 2010Q4

REPORT INFORMATION
  Report Type: 
  Country: None (occurrence: None)
  Receive Date: 20101019
  Receipt Date: 20101012
  Transmission Date: 20110411
  Serious: Yes (Other)
  Sender: FDA-Public Use
  Company Number: US-WYE-H18160110

PATIENT
  Sex: Male
  Weight: 88.53 kg

DRUGS (2)
  1. PRISTIQ [Suspect]
     Indication: DEPRESSION
     Route: 048
     Dates: start: 20100901
  2. ADDERALL 10 [Concomitant]
     Route: 048

REACTIONS (3)
  - DIZZINESS [None]
  - HYPERHIDROSIS [None]
  - INTERVERTEBRAL DISC PROTRUSION [None]
